FAERS Safety Report 7938430-3 (Version None)
Quarter: 2011Q4

REPORT INFORMATION
  Report Type: 
  Country: None (occurrence: None)
  Receive Date: 20111123
  Receipt Date: 20111119
  Transmission Date: 20120403
  Serious: Yes (Other)
  Sender: FDA-Public Use
  Company Number: US-AMGEN-USASP2011051469

PATIENT
  Age: 7 Year
  Sex: Female
  Weight: 52 kg

DRUGS (2)
  1. NPLATE [Suspect]
     Indication: IDIOPATHIC THROMBOCYTOPENIC PURPURA
     Dosage: 10 MUG/KG, QWK
     Dates: start: 20110531
  2. PREDNISONE TAB [Concomitant]
     Indication: IDIOPATHIC THROMBOCYTOPENIC PURPURA
     Dosage: UNK UNK, QWK

REACTIONS (2)
  - NEUTRALISING ANTIBODIES POSITIVE [None]
  - THERAPEUTIC RESPONSE DECREASED [None]
